FAERS Safety Report 21221720 (Version 1)
Quarter: 2022Q3

REPORT INFORMATION
  Report Type: Spontaneous
  Country: RO (occurrence: RO)
  Receive Date: 20220817
  Receipt Date: 20220817
  Transmission Date: 20221027
  Serious: Yes (Other)
  Sender: FDA-Public Use
  Company Number: RO-MLMSERVICE-20220728-3701676-1

PATIENT
  Age: 47 Year
  Sex: Female

DRUGS (4)
  1. SERTRALINE [Suspect]
     Active Substance: SERTRALINE HYDROCHLORIDE
     Indication: Depression
     Dosage: HIGH-DOSE
  2. RISPERIDONE [Suspect]
     Active Substance: RISPERIDONE
     Indication: Depression
     Dosage: HIGH-DOSE
  3. RISPERIDONE [Suspect]
     Active Substance: RISPERIDONE
     Indication: Panic attack
     Dosage: HIGH-DOSE
  4. SERTRALINE [Suspect]
     Active Substance: SERTRALINE HYDROCHLORIDE
     Indication: Panic attack
     Dosage: HIGH-DOSE

REACTIONS (1)
  - Parkinson^s disease [Unknown]
